FAERS Safety Report 4860388-4 (Version None)
Quarter: 2005Q4

REPORT INFORMATION
  Report Type: 
  Country: None (occurrence: None)
  Receive Date: 20051219
  Receipt Date: 20051209
  Transmission Date: 20060501
  Serious: Yes (Death, Other)
  Sender: FDA-Public Use
  Company Number: CA-BRISTOL-MYERS SQUIBB COMPANY-13218136

PATIENT
  Age: 74 Year
  Sex: Female

DRUGS (12)
  1. TEQUIN [Suspect]
     Route: 048
  2. AMIODARONE HCL [Concomitant]
     Route: 048
  3. CALCIUM GLUCONATE [Concomitant]
     Route: 048
  4. COREG [Concomitant]
     Route: 048
  5. COUMADIN [Concomitant]
  6. DIGOXIN [Concomitant]
  7. ENALAPRIL [Concomitant]
     Route: 048
  8. FOSAMAX [Concomitant]
     Route: 048
  9. L-THYROXINE [Concomitant]
     Route: 048
  10. LASIX [Concomitant]
     Route: 048
  11. SPIRONOLACTONE [Concomitant]
     Route: 048
  12. LIPITOR [Concomitant]
     Route: 048

REACTIONS (11)
  - ABDOMINAL PAIN [None]
  - ASTHENIA [None]
  - BLOOD POTASSIUM [None]
  - BLOOD SODIUM [None]
  - DEATH [None]
  - DECREASED APPETITE [None]
  - DIABETES MELLITUS [None]
  - HYPERGLYCAEMIA [None]
  - HYPOTENSION [None]
  - RENAL IMPAIRMENT [None]
  - URINE ABNORMALITY [None]
